FAERS Safety Report 16185473 (Version 6)
Quarter: 2019Q3

REPORT INFORMATION
  Report Type: Spontaneous
  Country: US (occurrence: US)
  Receive Date: 20190411
  Receipt Date: 20190924
  Transmission Date: 20191004
  Serious: Yes (Hospitalization, Disabling, Other)
  Sender: FDA-Public Use
  Company Number: US-BAYER-2019-073297

PATIENT
  Age: 54 Year
  Sex: Female

DRUGS (1)
  1. CIPRO [Suspect]
     Active Substance: CIPROFLOXACIN HYDROCHLORIDE
     Indication: BLADDER DISORDER
     Dosage: UNK
     Route: 042
     Dates: start: 20150213

REACTIONS (15)
  - Acquired mitochondrial DNA mutation [None]
  - Unevaluable event [None]
  - Head injury [None]
  - Hospitalisation [None]
  - Muscle spasms [None]
  - Myalgia [None]
  - Tendon injury [None]
  - Muscle injury [None]
  - Intentional product use issue [None]
  - Fall [None]
  - Gait disturbance [Not Recovered/Not Resolved]
  - Contusion [Not Recovered/Not Resolved]
  - Liver injury [None]
  - Hormone level abnormal [None]
  - Limb injury [None]

NARRATIVE: CASE EVENT DATE: 20150213
